FAERS Safety Report 4503228-5 (Version None)
Quarter: 2004Q4

REPORT INFORMATION
  Report Type: 
  Country: None (occurrence: None)
  Receive Date: 20041112
  Receipt Date: 20041026
  Transmission Date: 20050328
  Serious: Yes (Death)
  Sender: FDA-Public Use
  Company Number: DSA_70508_2004

PATIENT
  Age: 63 Year
  Sex: Female

DRUGS (1)
  1. AZATHIOPRINE [Suspect]
     Indication: IMMUNOSUPPRESSANT DRUG THERAPY
     Dosage: 100 MG QDAY
     Dates: start: 19990101, end: 19991201

REACTIONS (6)
  - BLAST CELLS PRESENT [None]
  - HAEMORRHAGE [None]
  - MARROW HYPERPLASIA [None]
  - NEUTROPHIL PELGER-HUET ANOMALY PRESENT [None]
  - PANCYTOPENIA [None]
  - WHITE BLOOD CELL DISORDER [None]
